FAERS Safety Report 9655916 (Version 3)
Quarter: 2013Q4

REPORT INFORMATION
  Report Type: Spontaneous
  Country: BE (occurrence: BE)
  Receive Date: 20131030
  Receipt Date: 20131122
  Transmission Date: 20140711
  Serious: Yes (Death)
  Sender: FDA-Public Use
  Company Number: BE-BRISTOL-MYERS SQUIBB COMPANY-19689934

PATIENT
  Age: 66 Year
  Sex: Male
  Weight: 52 kg

DRUGS (3)
  1. ERBITUX [Suspect]
     Indication: HEAD AND NECK CANCER METASTATIC
     Route: 042
     Dates: start: 20130915, end: 20131015
  2. PLATINOL [Suspect]
     Route: 042
     Dates: start: 20130915, end: 20130915
  3. FLURACEDYL [Suspect]
     Route: 042
     Dates: start: 20130915, end: 20130918

REACTIONS (2)
  - Diarrhoea [Fatal]
  - Dehydration [Unknown]
